FAERS Safety Report 8189709-4 (Version None)
Quarter: 2012Q1

REPORT INFORMATION
  Report Type: 
  Country: None (occurrence: None)
  Receive Date: 20120305
  Receipt Date: 20120223
  Transmission Date: 20120608
  Serious: Yes (Hospitalization)
  Sender: FDA-Public Use
  Company Number: AUR-APL-2011-01036

PATIENT
  Age: 67 Year
  Sex: Female

DRUGS (9)
  1. INSULIN GLARGINE (INSULIN GLARGINE) [Suspect]
     Indication: TYPE 2 DIABETES MELLITUS
     Dosage: (35 IU), UNKNOWN
  2. COUMADIN [Suspect]
     Indication: PRODUCT USED FOR UNKNOWN INDICATION
     Dosage: UNKNOWN
  3. METFORMIN HCL [Suspect]
     Indication: PRODUCT USED FOR UNKNOWN INDICATION
     Dosage: (2000 MG), UNKNOWN
     Dates: start: 20100823
  4. BACTRIM [Suspect]
     Indication: PRODUCT USED FOR UNKNOWN INDICATION
     Dosage: (1600 MG), UNKNOWN
     Dates: start: 20101205, end: 20101211
  5. SAXAGLIPTIN (SAXAGLIPTIN) [Suspect]
     Indication: TYPE 2 DIABETES MELLITUS
     Dosage: UNKNOWN
     Dates: start: 20100823
  6. PLACEBO [Suspect]
     Indication: TYPE 2 DIABETES MELLITUS
     Dosage: UNKNOWN
  7. GLUCAGON [Suspect]
     Indication: TYPE 2 DIABETES MELLITUS
     Dosage: (1 MG), UNKNOWN
  8. ASPIRIN [Concomitant]
  9. INSULIN LISPRO (INSULIN LISPRO) [Suspect]
     Indication: TYPE 2 DIABETES MELLITUS
     Dosage: (10 IU), UNKNOWN

REACTIONS (7)
  - SKIN ULCER [None]
  - INTERNATIONAL NORMALISED RATIO INCREASED [None]
  - INTERNATIONAL NORMALISED RATIO FLUCTUATION [None]
  - ANTIBIOTIC RESISTANT STAPHYLOCOCCUS TEST POSITIVE [None]
  - CELLULITIS [None]
  - PULMONARY OEDEMA [None]
  - DRUG INTERACTION [None]
